FAERS Safety Report 4974900-8 (Version None)
Quarter: 2006Q1

REPORT INFORMATION
  Report Type: 
  Country: None (occurrence: None)
  Receive Date: 20060227
  Receipt Date: 20051121
  Transmission Date: 20060701
  Serious: No
  Sender: FDA-Public Use
  Company Number: PHEH2005US12167

PATIENT
  Age: 66 Year
  Sex: Male

DRUGS (3)
  1. ENABLEX [Suspect]
     Indication: HYPERTONIC BLADDER
     Dosage: SEE IMAGE
  2. LIPITOR [Concomitant]
  3. TOPROL-XL [Concomitant]

REACTIONS (2)
  - DRUG INEFFECTIVE [None]
  - POLLAKIURIA [None]
